FAERS Safety Report 23747374 (Version 1)
Quarter: 2024Q2

REPORT INFORMATION
  Report Type: Spontaneous
  Country: US (occurrence: US)
  Receive Date: 20240416
  Receipt Date: 20240416
  Transmission Date: 20240715
  Serious: Yes (Hospitalization)
  Sender: FDA-Public Use
  Company Number: US-GTI-000234

PATIENT
  Age: 74 Year
  Sex: Female

DRUGS (4)
  1. PREDNISONE [Suspect]
     Active Substance: PREDNISONE
     Indication: Rheumatoid arthritis
     Route: 065
  2. CERTOLIZUMAB [Suspect]
     Active Substance: CERTOLIZUMAB
     Indication: Rheumatoid arthritis
     Route: 065
  3. APIXABAN [Concomitant]
     Active Substance: APIXABAN
     Indication: Atrial fibrillation
     Route: 065
  4. LEVETIRACETAM [Concomitant]
     Active Substance: LEVETIRACETAM
     Indication: Seizure
     Route: 065

REACTIONS (6)
  - Septic shock [Recovered/Resolved]
  - Meningitis listeria [Not Recovered/Not Resolved]
  - Acute kidney injury [Unknown]
  - CNS ventriculitis [Not Recovered/Not Resolved]
  - Meningitis pneumococcal [Not Recovered/Not Resolved]
  - Coma [Not Recovered/Not Resolved]
